FAERS Safety Report 5872468-5 (Version None)
Quarter: 2008Q3

REPORT INFORMATION
  Report Type: 
  Country: None (occurrence: None)
  Receive Date: 20080905
  Receipt Date: 20080903
  Transmission Date: 20090109
  Serious: Yes (Death)
  Sender: FDA-Public Use
  Company Number: HR-JNJFOC-20080900827

PATIENT
  Sex: Male

DRUGS (4)
  1. RISPOLEPT CONSTA [Suspect]
     Indication: DELUSIONAL DISORDER, PERSECUTORY TYPE
     Route: 030
  2. NORMABEL [Concomitant]
  3. AKINETON [Concomitant]
  4. SANVAL [Concomitant]

REACTIONS (1)
  - PULMONARY EMBOLISM [None]
